FAERS Safety Report 4919698-4 (Version None)
Quarter: 2006Q1

REPORT INFORMATION
  Report Type: 
  Country: None (occurrence: None)
  Receive Date: 20060217
  Receipt Date: 20060210
  Transmission Date: 20060701
  Serious: Yes (Other)
  Sender: FDA-Public Use
  Company Number: HQWYE538027JAN06

PATIENT
  Age: 55 Year
  Sex: Female

DRUGS (5)
  1. PREMARIN [Suspect]
     Indication: ATROPHIC VULVOVAGINITIS
     Dosage: 0.625 MG 1X PER 1 DAY, VAGINAL
     Route: 067
     Dates: start: 20060113, end: 20060117
  2. PREMARIN [Suspect]
     Indication: VULVOVAGINAL DRYNESS
     Dosage: 0.625 MG 1X PER 1 DAY, VAGINAL
     Route: 067
     Dates: start: 20060113, end: 20060117
  3. AVAPRO [Concomitant]
  4. HYDROCHLOROTHIAZIDE [Concomitant]
  5. ATENOLOL [Concomitant]

REACTIONS (3)
  - ANORECTAL DISORDER [None]
  - HYPERSENSITIVITY [None]
  - OEDEMA GENITAL [None]
